FAERS Safety Report 9449717 (Version 2)
Quarter: 2013Q3

REPORT INFORMATION
  Report Type: Spontaneous
  Country: US (occurrence: US)
  Receive Date: 20130809
  Receipt Date: 20130822
  Transmission Date: 20140515
  Serious: Yes (Other)
  Sender: FDA-Public Use
  Company Number: US-ACCORD-018879

PATIENT
  Age: 35 Year
  Sex: Female
  Weight: 113 kg

DRUGS (9)
  1. SUCCINYLCHOLINE [Concomitant]
  2. DESFLURANE [Concomitant]
     Dosage: 6%
  3. LAMOTRIGINE [Concomitant]
  4. QUETIAPINE FUMARATE [Suspect]
     Indication: PRODUCT USED FOR UNKNOWN INDICATION
  5. VENLAFAXINE [Concomitant]
  6. MIDAZOLAM [Concomitant]
     Indication: PREMEDICATION
     Route: 042
  7. FENTANYL [Concomitant]
     Indication: PREMEDICATION
     Route: 042
  8. LIDOCAINE [Concomitant]
     Indication: ANAESTHESIA
     Route: 042
  9. PROPOFOL [Interacting]
     Indication: ANAESTHESIA
     Route: 042

REACTIONS (2)
  - Hypotension [Recovering/Resolving]
  - Drug interaction [Unknown]
